FAERS Safety Report 19133416 (Version 1)
Quarter: 2021Q2

REPORT INFORMATION
  Report Type: Spontaneous
  Country: US (occurrence: US)
  Receive Date: 20210413
  Receipt Date: 20210413
  Transmission Date: 20210717
  Serious: Yes (Other)
  Sender: FDA-Public Use
  Company Number: None

PATIENT
  Age: 49 Year
  Sex: Female
  Weight: 108 kg

DRUGS (3)
  1. NATURE MADE MAGNESIUM [Concomitant]
  2. VENLAFAXINE HCL ER CAPS 37.5 MG [Suspect]
     Active Substance: VENLAFAXINE HYDROCHLORIDE
     Indication: DEPRESSION
     Dosage: ?          QUANTITY:1 CAPSULE(S);?
     Route: 048
  3. NATURE MADE FISH OIL 1200MG, 360MG OMEGA NATURE MADE NUITRITIONAL PRODUCT [Concomitant]
     Active Substance: FISH OIL\OMEGA-3 FATTY ACIDS

REACTIONS (5)
  - Vertigo [None]
  - Nausea [None]
  - Migraine [None]
  - Suspected product quality issue [None]
  - Dizziness [None]

NARRATIVE: CASE EVENT DATE: 20210413
